FAERS Safety Report 24553027 (Version 1)
Quarter: 2024Q4

REPORT INFORMATION
  Report Type: Spontaneous
  Country: US (occurrence: US)
  Receive Date: 20241027
  Receipt Date: 20241027
  Transmission Date: 20250114
  Serious: No
  Sender: BAUSCH AND LOMB
  Company Number: US-BAUSCHBL-2024BNL036241

PATIENT
  Sex: Female

DRUGS (2)
  1. DORZOLAMIDE HYDROCHLORIDE [Suspect]
     Active Substance: DORZOLAMIDE HYDROCHLORIDE
     Indication: Intraocular pressure increased
     Dosage: TAKES ONE DROP, TWICE A DAY IN LEFT EYE
     Route: 047
  2. DORZOLAMIDE HYDROCHLORIDE [Suspect]
     Active Substance: DORZOLAMIDE HYDROCHLORIDE
     Dosage: TAKES ONE DROP, TWICE A DAY IN LEFT EYE AND RIGHT EYE.
     Route: 047

REACTIONS (7)
  - Intraocular pressure increased [Unknown]
  - Condition aggravated [Unknown]
  - Therapy interrupted [Unknown]
  - Inappropriate schedule of product administration [Unknown]
  - Product container issue [Unknown]
  - Product availability issue [Unknown]
  - Product complaint [Unknown]
